FAERS Safety Report 21628760 (Version 1)
Quarter: 2022Q4

REPORT INFORMATION
  Report Type: Spontaneous
  Country: US (occurrence: US)
  Receive Date: 20221122
  Receipt Date: 20221122
  Transmission Date: 20230112
  Serious: Yes (Death, Hospitalization, Other)
  Sender: FDA-Public Use
  Company Number: US-ViiV Healthcare Limited-US2022GSK172645

PATIENT

DRUGS (6)
  1. DOLUTEGRAVIR [Suspect]
     Active Substance: DOLUTEGRAVIR
     Indication: HIV infection
     Dosage: UNK
  2. EMTRICITABINE [Suspect]
     Active Substance: EMTRICITABINE
     Indication: HIV infection
     Dosage: UNK
  3. TENOFOVIR ALAFENAMIDE [Suspect]
     Active Substance: TENOFOVIR ALAFENAMIDE
     Indication: HIV infection
     Dosage: UNK
  4. LEVOTHYROXINE [Concomitant]
     Active Substance: LEVOTHYROXINE
     Indication: Hypothyroidism
     Dosage: UNK
  5. SULFAMETHOXAZOLE\TRIMETHOPRIM [Concomitant]
     Active Substance: SULFAMETHOXAZOLE\TRIMETHOPRIM
     Indication: Infection prophylaxis
     Dosage: UNK
  6. FLUCONAZOLE [Concomitant]
     Active Substance: FLUCONAZOLE
     Indication: Infection prophylaxis
     Dosage: UNK

REACTIONS (15)
  - Haemophagocytic lymphohistiocytosis [Fatal]
  - Immune reconstitution inflammatory syndrome [Fatal]
  - Pyrexia [Recovered/Resolved]
  - Tachycardia [Unknown]
  - Fatigue [Unknown]
  - Cytopenia [Not Recovered/Not Resolved]
  - Diarrhoea [Unknown]
  - Hypotension [Unknown]
  - Pancytopenia [Not Recovered/Not Resolved]
  - Splenomegaly [Unknown]
  - Bone marrow failure [Fatal]
  - Hepatic failure [Fatal]
  - Renal failure [Fatal]
  - Respiratory failure [Fatal]
  - Cardiac failure [Fatal]
